FAERS Safety Report 4699400-4 (Version None)
Quarter: 2005Q2

REPORT INFORMATION
  Report Type: 
  Country: None (occurrence: None)
  Receive Date: 20050621
  Receipt Date: 20050606
  Transmission Date: 20051028
  Serious: Yes (Other)
  Sender: FDA-Public Use
  Company Number: ENTC2005-0154

PATIENT
  Age: 68 Year
  Sex: Female

DRUGS (5)
  1. STALEVO 100 [Suspect]
     Indication: PARKINSON'S DISEASE
     Dosage: 150/37.5/200 MG X 4
     Route: 048
     Dates: start: 20041001, end: 20050529
  2. MODOPAR [Concomitant]
  3. MANTADIX [Concomitant]
  4. TRIVASTAL [Concomitant]
  5. PROZAC [Concomitant]

REACTIONS (1)
  - CORONARY ARTERY OCCLUSION [None]
